FAERS Safety Report 4707542-X (Version None)
Quarter: 2005Q3

REPORT INFORMATION
  Report Type: 
  Country: None (occurrence: None)
  Receive Date: 20050706
  Receipt Date: 20050624
  Transmission Date: 20060218
  Serious: Yes (Hospitalization)
  Sender: FDA-Public Use
  Company Number: DE-JNJFOC-20050607104

PATIENT
  Age: 42 Year
  Sex: Female

DRUGS (7)
  1. HALDOL [Suspect]
     Route: 049
  2. HALDOL [Suspect]
     Route: 049
  3. HALDOL [Suspect]
     Indication: SCHIZOAFFECTIVE DISORDER
     Route: 049
  4. TAXILAN [Suspect]
     Route: 049
  5. TAXILAN [Suspect]
     Route: 049
  6. TAXILAN [Suspect]
     Indication: SCHIZOAFFECTIVE DISORDER
     Route: 049
  7. AKINETON [Concomitant]
     Route: 049

REACTIONS (1)
  - OEDEMA PERIPHERAL [None]
